FAERS Safety Report 6155351-X (Version None)
Quarter: 2009Q2

REPORT INFORMATION
  Report Type: 
  Country: None (occurrence: None)
  Receive Date: 20090415
  Receipt Date: 20090403
  Transmission Date: 20091009
  Serious: No
  Sender: FDA-Public Use
  Company Number: US-ELI_LILLY_AND_COMPANY-US200901003310

PATIENT
  Age: 57 Year
  Sex: Male

DRUGS (5)
  1. CYMBALTA [Suspect]
     Indication: DEPRESSION
     Dosage: 60 MG, UNK
     Route: 048
     Dates: start: 20070101
  2. EFFEXOR [Concomitant]
  3. LOPRESSOR HCT [Concomitant]
  4. LORAZEPAM [Concomitant]
  5. METOPROLOL TARTRATE [Concomitant]

REACTIONS (1)
  - LOSS OF LIBIDO [None]
